FAERS Safety Report 9238525 (Version 1)
Quarter: 2013Q2

REPORT INFORMATION
  Report Type: Spontaneous
  Country: US (occurrence: None)
  Receive Date: 20130418
  Receipt Date: 20130418
  Transmission Date: 20140414
  Serious: Yes (Life-Threatening)
  Sender: FDA-Public Use
  Company Number: None

PATIENT
  Age: 81 Year
  Sex: Male
  Weight: 81.64 kg

DRUGS (1)
  1. WARFARIN 5 MG [Suspect]
     Route: 048

REACTIONS (3)
  - Epistaxis [None]
  - Retching [None]
  - International normalised ratio increased [None]
